FAERS Safety Report 6667003-8 (Version None)
Quarter: 2010Q2

REPORT INFORMATION
  Report Type: 
  Country: None (occurrence: None)
  Receive Date: 20100405
  Receipt Date: 20100331
  Transmission Date: 20101027
  Serious: Yes (Hospitalization)
  Sender: FDA-Public Use
  Company Number: JP-BAYER-201011452BYL

PATIENT
  Age: 40 Year
  Sex: Female

DRUGS (7)
  1. ADALAT CC [Suspect]
     Indication: HYPERTENSION
     Route: 048
     Dates: end: 20090903
  2. VALSARTAN [Suspect]
     Indication: HYPERTENSION
     Route: 048
     Dates: end: 20090903
  3. DOXAZOSIN MESYLATE [Suspect]
     Indication: HYPERTENSION
     Route: 048
     Dates: end: 20090903
  4. PIOGLITAZONE HCL [Concomitant]
     Indication: DIABETES MELLITUS
     Route: 048
     Dates: end: 20090903
  5. AMLODIPINE [Concomitant]
     Indication: HYPERTENSION
     Route: 048
     Dates: start: 20090904
  6. TRANDATE [Concomitant]
     Indication: HYPERTENSION
     Route: 048
     Dates: start: 20090904
  7. INSULIN [Concomitant]
     Indication: DIABETES MELLITUS
     Route: 065
     Dates: start: 20090904

REACTIONS (2)
  - INTRA-UTERINE DEATH [None]
  - OLIGOHYDRAMNIOS [None]
